FAERS Safety Report 9453124 (Version 2)
Quarter: 2013Q4

REPORT INFORMATION
  Report Type: Spontaneous
  Country: US (occurrence: US)
  Receive Date: 20130812
  Receipt Date: 20131214
  Transmission Date: 20140711
  Serious: Yes (Other)
  Sender: FDA-Public Use
  Company Number: US-THROMBOGENICS NV-JET-2013-036

PATIENT
  Age: 51 Year
  Sex: Female

DRUGS (1)
  1. JETREA [Suspect]
     Indication: PRODUCT USED FOR UNKNOWN INDICATION
     Dosage: 0.125 MG, ONE TIME DOSE
     Route: 031
     Dates: start: 20130315, end: 20130315

REACTIONS (7)
  - Retinal tear [Unknown]
  - Retinal detachment [Recovered/Resolved]
  - Lens disorder [Unknown]
  - Lens disorder [Unknown]
  - Visual acuity reduced [Unknown]
  - Photopsia [Recovered/Resolved]
  - Vitreous floaters [Recovered/Resolved]
